FAERS Safety Report 9495466 (Version 1)
Quarter: 2013Q3

REPORT INFORMATION
  Report Type: Report from Study
  Country: US (occurrence: US)
  Receive Date: 20130903
  Receipt Date: 20130903
  Transmission Date: 20140515
  Serious: Yes (Hospitalization, Other)
  Sender: FDA-Public Use
  Company Number: US-TEVA-429181USA

PATIENT
  Age: 70 Year
  Sex: Female
  Weight: 88.3 kg

DRUGS (2)
  1. DAUNORUBICIN [Suspect]
     Indication: ACUTE MYELOID LEUKAEMIA
     Dosage: DAYS 1-3 OVER 24 HOURS
     Route: 041
  2. CYTARABINE [Suspect]
     Indication: ACUTE MYELOID LEUKAEMIA
     Dosage: DAYS 1-7 OVER 24 HOURS
     Route: 041

REACTIONS (3)
  - Sepsis [Not Recovered/Not Resolved]
  - Wound infection [Not Recovered/Not Resolved]
  - Colitis [Not Recovered/Not Resolved]
